FAERS Safety Report 9846261 (Version 1)
Quarter: 2013Q4

REPORT INFORMATION
  Report Type: Spontaneous
  Country: US (occurrence: None)
  Receive Date: 20131223
  Receipt Date: 20131223
  Transmission Date: 20140711
  Serious: No
  Sender: FDA-Public Use
  Company Number: CABO-13003254

PATIENT
  Age: 69 Year
  Sex: Female

DRUGS (1)
  1. COMETRIQ (CABOZANTINIB) CAPSULE [Suspect]
     Indication: THYROID CANCER
     Route: 048
     Dates: start: 20130820, end: 2013

REACTIONS (7)
  - Dry mouth [None]
  - Gastrooesophageal reflux disease [None]
  - Paraesthesia oral [None]
  - Dizziness [None]
  - Nausea [None]
  - Diarrhoea [None]
  - Orthostatic hypotension [None]
